FAERS Safety Report 6365516-X (Version None)
Quarter: 2009Q3

REPORT INFORMATION
  Report Type: 
  Country: None (occurrence: None)
  Receive Date: 20090919
  Receipt Date: 20090813
  Transmission Date: 20100115
  Serious: No
  Sender: FDA-Public Use
  Company Number: US-ABBOTT-09P-163-0592119-00

PATIENT
  Sex: Female
  Weight: 122.58 kg

DRUGS (12)
  1. HUMIRA [Suspect]
     Indication: RHEUMATOID ARTHRITIS
     Dates: start: 20090717
  2. LEFLUNOMIDE [Concomitant]
     Indication: RHEUMATOID ARTHRITIS
     Dates: start: 20090101
  3. WARFARIN SODIUM [Concomitant]
     Indication: PULMONARY THROMBOSIS
     Dosage: 10 MG DAILY EVERY MON, WED, FRI, SAT, SUN. 15 MG DAILY EVERY TUES AND THURS
  4. WARFARIN SODIUM [Concomitant]
     Indication: THROMBOSIS
  5. LASIX [Concomitant]
     Indication: CARDIAC FAILURE CONGESTIVE
  6. LISINOPRIL [Concomitant]
     Indication: HYPERTENSION
  7. CARVEDILOL [Concomitant]
     Indication: HYPERTENSION
  8. PREVACID [Concomitant]
     Indication: GASTRIC ULCER
  9. PREVACID [Concomitant]
     Indication: GASTROOESOPHAGEAL REFLUX DISEASE
  10. BUSPIRONE HCL [Concomitant]
     Indication: DEPRESSION
  11. ALPRAZOLAM [Concomitant]
     Indication: ANXIETY
  12. ALPRAZOLAM [Concomitant]
     Indication: DEPRESSION

REACTIONS (13)
  - ABDOMINAL DISTENSION [None]
  - BACK PAIN [None]
  - BLEEDING TIME PROLONGED [None]
  - CARDIAC FAILURE CONGESTIVE [None]
  - CHEST PAIN [None]
  - COUGH [None]
  - HYPERHIDROSIS [None]
  - MOBILITY DECREASED [None]
  - OEDEMA PERIPHERAL [None]
  - ORAL HERPES [None]
  - PLEURISY [None]
  - PYREXIA [None]
  - VOMITING [None]
